FAERS Safety Report 4537205-5 (Version None)
Quarter: 2004Q4

REPORT INFORMATION
  Report Type: 
  Country: None (occurrence: None)
  Receive Date: 20041223
  Receipt Date: 20041221
  Transmission Date: 20050328
  Serious: Yes (Other)
  Sender: FDA-Public Use
  Company Number: PHNU2004DE04273

PATIENT
  Sex: Female

DRUGS (1)
  1. LAMISIL [Suspect]
     Indication: NAIL TINEA
     Dates: start: 20041101

REACTIONS (3)
  - PNEUMONIA BACTERIAL [None]
  - SOFT TISSUE INFECTION [None]
  - WHITE BLOOD CELL DISORDER [None]
